FAERS Safety Report 4621907-6 (Version None)
Quarter: 2005Q1

REPORT INFORMATION
  Report Type: 
  Country: None (occurrence: None)
  Receive Date: 20050329
  Receipt Date: 20050317
  Transmission Date: 20050727
  Serious: Yes (Other)
  Sender: FDA-Public Use
  Company Number: 12893624

PATIENT
  Age: 50 Year
  Sex: Male

DRUGS (3)
  1. ZIDOVUDINE [Suspect]
     Indication: HIV INFECTION
     Dates: start: 20040929
  2. EFAVIRENZ [Suspect]
     Indication: HIV INFECTION
     Dates: start: 20040929
  3. DIDANOSINE [Suspect]
     Indication: HIV INFECTION
     Dates: start: 20040929

REACTIONS (1)
  - BLOOD AMYLASE INCREASED [None]
